FAERS Safety Report 18831786 (Version 1)
Quarter: 2021Q1

REPORT INFORMATION
  Report Type: Spontaneous
  Country: US (occurrence: US)
  Receive Date: 20210203
  Receipt Date: 20210203
  Transmission Date: 20210419
  Serious: No
  Sender: FDA-Public Use
  Company Number: US-MTPC-MTDA2021-0002498

PATIENT
  Sex: Male

DRUGS (2)
  1. RADICAVA [Suspect]
     Active Substance: EDARAVONE
     Indication: AMYOTROPHIC LATERAL SCLEROSIS
     Dosage: 60 MILLIGRAM OVER 60 MINUTES, QD FOR 14 DAYS FOLLOWED BY A 14?DAY DRUG?FREE PERIOD
     Route: 042
     Dates: start: 201803
  2. RADICAVA [Suspect]
     Active Substance: EDARAVONE
     Dosage: 60 MILLIGRAM, QD FOR 10 DAYS OUT OF 14?DAY PERIODS, FOLLOWED BY 14?DAY DRUG?FREE PERIODS
     Route: 042

REACTIONS (1)
  - Speech disorder [Unknown]
